FAERS Safety Report 14253079 (Version 3)
Quarter: 2018Q1

REPORT INFORMATION
  Report Type: Spontaneous
  Country: AR (occurrence: AR)
  Receive Date: 20171205
  Receipt Date: 20180130
  Transmission Date: 20180508
  Serious: Yes (Other)
  Sender: FDA-Public Use
  Company Number: AR-ELI_LILLY_AND_COMPANY-AR201711011506

PATIENT
  Age: 78 Year
  Sex: Female

DRUGS (6)
  1. ESOMEPRAZOLE [Concomitant]
     Active Substance: ESOMEPRAZOLE
     Indication: GASTROINTESTINAL DISORDER
     Dosage: 40 MG, UNK
  2. COZAAR [Concomitant]
     Active Substance: LOSARTAN POTASSIUM
     Indication: PRODUCT USED FOR UNKNOWN INDICATION
     Dosage: 50 MG, UNK
  3. EUDON [Concomitant]
     Indication: DYSPEPSIA
  4. FORTEO [Suspect]
     Active Substance: TERIPARATIDE
     Indication: PRODUCT USED FOR UNKNOWN INDICATION
     Dosage: UNK UNK, UNKNOWN
     Route: 058
     Dates: start: 20160621
  5. CLEBOPRIDE MALATE [Concomitant]
     Active Substance: CLEBOPRIDE MALATE
     Indication: PRODUCT USED FOR UNKNOWN INDICATION
  6. BROMAZEPAM [Concomitant]
     Active Substance: BROMAZEPAM
     Indication: PRODUCT USED FOR UNKNOWN INDICATION

REACTIONS (4)
  - Fall [Recovered/Resolved]
  - Renal cancer [Unknown]
  - Spinal disorder [Unknown]
  - Monoplegia [Recovered/Resolved]

NARRATIVE: CASE EVENT DATE: 201710
